FAERS Safety Report 5678781-9 (Version None)
Quarter: 2008Q1

REPORT INFORMATION
  Report Type: 
  Country: None (occurrence: None)
  Receive Date: 20080320
  Receipt Date: 20080310
  Transmission Date: 20080703
  Serious: Yes (Other)
  Sender: FDA-Public Use
  Company Number: 100#03#2008-01410

PATIENT
  Age: 42 Year
  Sex: Male

DRUGS (10)
  1. CITALOPRAM HYDROBROMIDE [Suspect]
     Indication: DRUG USE FOR UNKNOWN INDICATION
     Dosage: 20 MG ONCE DAILY
     Dates: start: 20071129, end: 20071219
  2. DEPAKOTE [Concomitant]
  3. DIAZEPAM [Concomitant]
  4. FERROUS SULPHATE (IRON) [Concomitant]
  5. HALOPERIDOL [Concomitant]
  6. LAMOTRIGINE [Concomitant]
  7. LANSOPRAZOLE [Concomitant]
  8. OLANZAPINE [Concomitant]
  9. ACETAMINOPHEN [Concomitant]
  10. PROCYCLIDINE HYDROCHLORIDE (PROCYCLIDINE) [Concomitant]

REACTIONS (1)
  - SINUS BRADYCARDIA [None]
